FAERS Safety Report 12221513 (Version 1)
Quarter: 2016Q1

REPORT INFORMATION
  Report Type: Spontaneous
  Country: US (occurrence: US)
  Receive Date: 20160330
  Receipt Date: 20160330
  Transmission Date: 20160526
  Serious: No
  Sender: FDA-Public Use
  Company Number: US-009507513-1603USA009429

PATIENT
  Age: 70 Year
  Sex: Female
  Weight: 77.11 kg

DRUGS (7)
  1. AROMASIN [Suspect]
     Active Substance: EXEMESTANE
     Indication: HORMONE SUPPRESSION THERAPY
     Dosage: 25 MG TABLET, ONCE DAILY
     Route: 048
     Dates: start: 20160209
  2. FOSAMAX [Suspect]
     Active Substance: ALENDRONATE SODIUM
     Dosage: UNK
     Route: 048
     Dates: start: 201509, end: 201509
  3. CYANOCOBALAMIN. [Concomitant]
     Active Substance: CYANOCOBALAMIN
     Indication: ASTHENIA
     Dosage: 1000 MCG TABLET, ONCE DAILY
     Route: 060
     Dates: start: 201503
  4. VITAMIN E [Concomitant]
     Active Substance: .ALPHA.-TOCOPHEROL
     Indication: VITAMIN E DEFICIENCY
     Dosage: STARTED AFTER JULY 2014, 1000 IU SOFTGEL, ONCE DAILY
  5. AROMASIN [Suspect]
     Active Substance: EXEMESTANE
     Indication: BREAST CANCER
     Dosage: 25 MG TABLET, ONCE DAILY
     Route: 048
     Dates: start: 201501, end: 201511
  6. CHOLECALCIFEROL [Concomitant]
     Active Substance: CHOLECALCIFEROL
     Indication: HYPOVITAMINOSIS
     Dosage: 5000 IU CAPSULE, ONCE DAILY
     Dates: start: 201401
  7. CORAL CALCIUM SUPREME [Concomitant]
     Indication: OSTEOPOROSIS
     Dosage: 200 MG, 2 SOFTGELS DAILY
     Dates: start: 201503

REACTIONS (4)
  - Chest discomfort [Not Recovered/Not Resolved]
  - Arthritis [Unknown]
  - Chest pain [Not Recovered/Not Resolved]
  - Pain in extremity [Unknown]

NARRATIVE: CASE EVENT DATE: 201509
